FAERS Safety Report 6593448-0 (Version None)
Quarter: 2010Q1

REPORT INFORMATION
  Report Type: 
  Country: None (occurrence: None)
  Receive Date: 20100222
  Receipt Date: 20090427
  Transmission Date: 20100710
  Serious: No
  Sender: FDA-Public Use
  Company Number: US-BRISTOL-MYERS SQUIBB COMPANY-14602676

PATIENT
  Age: 47 Year
  Sex: Male
  Weight: 122 kg

DRUGS (1)
  1. ORENCIA [Suspect]
     Indication: RHEUMATOID ARTHRITIS
     Dates: start: 20081001

REACTIONS (4)
  - DIZZINESS [None]
  - NASAL DISCOMFORT [None]
  - PYREXIA [None]
  - RHINORRHOEA [None]
